FAERS Safety Report 5227136-X (Version None)
Quarter: 2007Q1

REPORT INFORMATION
  Report Type: 
  Country: None (occurrence: None)
  Receive Date: 20070201
  Receipt Date: 20070201
  Transmission Date: 20070707
  Serious: Yes (Other)
  Sender: FDA-Public Use
  Company Number: None

PATIENT
  Sex: Female
  Weight: 68.06 kg

DRUGS (21)
  1. ZOSYN [Suspect]
     Indication: CHRONIC SINUSITIS
     Dosage: 4.5 GM EVERY 12 HOURS IV
     Route: 042
     Dates: start: 20070110, end: 20070131
  2. TRAZODONE HCL [Concomitant]
  3. SOMA [Concomitant]
  4. WELLBUTRIN SR [Concomitant]
  5. ZETIA [Concomitant]
  6. UNIPHYL [Concomitant]
  7. SINGULAIR [Concomitant]
  8. TOPROL-XL [Concomitant]
  9. BACLOFEN [Concomitant]
  10. COMBIPATCH [Concomitant]
  11. IRON [Concomitant]
  12. GAMMA GLOBILIN [Concomitant]
  13. MAXAIR [Concomitant]
  14. METROCREAM [Concomitant]
  15. PROVIGIL [Concomitant]
  16. SPIRIVA [Concomitant]
  17. SYNTHROID [Concomitant]
  18. CORTEF [Concomitant]
  19. ALDACTONE [Concomitant]
  20. AMITIZA [Concomitant]
  21. BONIVA [Concomitant]

REACTIONS (1)
  - WHITE BLOOD CELL COUNT DECREASED [None]
